FAERS Safety Report 12695532 (Version 1)
Quarter: 2016Q3

REPORT INFORMATION
  Report Type: Spontaneous
  Country: US (occurrence: US)
  Receive Date: 20160829
  Receipt Date: 20160829
  Transmission Date: 20161109
  Serious: No
  Sender: FDA-Public Use
  Company Number: US-BAYER-2016-166753

PATIENT
  Age: 69 Year
  Sex: Female

DRUGS (1)
  1. GADAVIST [Suspect]
     Active Substance: GADOBUTROL
     Indication: COMPUTERISED TOMOGRAM
     Dosage: 5 ML, ONCE
     Route: 042
     Dates: start: 20160822, end: 20160822

REACTIONS (3)
  - Headache [None]
  - Asthenia [None]
  - Rash erythematous [None]

NARRATIVE: CASE EVENT DATE: 20160822
